FAERS Safety Report 9365779 (Version 1)
Quarter: 2013Q2

REPORT INFORMATION
  Report Type: Spontaneous
  Country: IT (occurrence: IT)
  Receive Date: 20130625
  Receipt Date: 20130625
  Transmission Date: 20140414
  Serious: Yes (Hospitalization)
  Sender: FDA-Public Use
  Company Number: IT-SANOFI-AVENTIS-2013SA061191

PATIENT
  Age: 79 Year
  Sex: Male

DRUGS (4)
  1. CLEXANE T [Suspect]
     Indication: DENTAL OPERATION
     Route: 058
     Dates: start: 20130417, end: 20130419
  2. METOPROLOL [Concomitant]
     Route: 048
  3. HALCION [Concomitant]
     Route: 048
  4. LANOXIN [Concomitant]
     Route: 048

REACTIONS (2)
  - Faeces discoloured [Unknown]
  - Presyncope [Unknown]
